FAERS Safety Report 9883580 (Version 2)
Quarter: 2014Q1

REPORT INFORMATION
  Report Type: Spontaneous
  Country: PL (occurrence: PL)
  Receive Date: 20140210
  Receipt Date: 20140326
  Transmission Date: 20141002
  Serious: Yes (Other)
  Sender: FDA-Public Use
  Company Number: PL-ROCHE-1345050

PATIENT
  Age: 42 Year
  Sex: Male

DRUGS (2)
  1. VEMURAFENIB [Suspect]
     Indication: PRODUCT USED FOR UNKNOWN INDICATION
     Dosage: (4 X 240 MG TABLET, TWICE DAILY
     Route: 065
     Dates: start: 201309
  2. VEMURAFENIB [Suspect]
     Route: 065

REACTIONS (3)
  - Hepatotoxicity [Recovered/Resolved]
  - Metastases to central nervous system [Unknown]
  - Drug resistance [Unknown]
